FAERS Safety Report 5323532-0 (Version None)
Quarter: 2007Q2

REPORT INFORMATION
  Report Type: 
  Country: None (occurrence: None)
  Receive Date: 20070509
  Receipt Date: 20070509
  Transmission Date: 20071010
  Serious: No
  Sender: FDA-Public Use
  Company Number: None

PATIENT
  Age: 63 Year
  Sex: Male
  Weight: 68.0396 kg

DRUGS (2)
  1. PERCOCET [Suspect]
     Indication: NEUROPATHY
     Dosage: 10/325 Q 4-6? P.O.
     Route: 048
     Dates: start: 20061101
  2. PERCOCET [Suspect]
     Indication: SPINAL OSTEOARTHRITIS
     Dosage: 10/325 Q 4-6? P.O.
     Route: 048
     Dates: start: 20061101

REACTIONS (4)
  - ABDOMINAL PAIN UPPER [None]
  - GASTROOESOPHAGEAL REFLUX DISEASE [None]
  - PHARMACEUTICAL PRODUCT COMPLAINT [None]
  - STOMACH DISCOMFORT [None]
